FAERS Safety Report 18957057 (Version 1)
Quarter: 2021Q1

REPORT INFORMATION
  Report Type: Spontaneous
  Country: FI (occurrence: FI)
  Receive Date: 20210302
  Receipt Date: 20210302
  Transmission Date: 20210420
  Serious: Yes (Other)
  Sender: FDA-Public Use
  Company Number: FI-SA-2021SA062523

PATIENT
  Age: 72 Year
  Sex: Female

DRUGS (1)
  1. KLEXANE [Suspect]
     Active Substance: ENOXAPARIN
     Indication: PERIPHERAL EMBOLISM
     Dosage: 40 MG, BID
     Route: 065

REACTIONS (3)
  - Pain [Unknown]
  - Injection site haemorrhage [Unknown]
  - Product storage error [Unknown]
